FAERS Safety Report 15403227 (Version 1)
Quarter: 2018Q3

REPORT INFORMATION
  Report Type: Spontaneous
  Country: UM (occurrence: UM)
  Receive Date: 20180918
  Receipt Date: 20180918
  Transmission Date: 20181010
  Serious: No
  Sender: FDA-Public Use
  Company Number: None

PATIENT
  Sex: Female

DRUGS (1)
  1. DEXTROAMPHETAMINE. [Suspect]
     Active Substance: DEXTROAMPHETAMINE
     Indication: NARCOLEPSY
     Dosage: ?          QUANTITY:186 TABLET(S);?
     Route: 048
     Dates: start: 20180525, end: 20180916

REACTIONS (5)
  - Vision blurred [None]
  - Lacrimation increased [None]
  - Headache [None]
  - Product substitution issue [None]
  - Fatigue [None]
